APPROVED DRUG PRODUCT: ZANTAC 25
Active Ingredient: RANITIDINE HYDROCHLORIDE
Strength: EQ 25MG BASE
Dosage Form/Route: TABLET, EFFERVESCENT;ORAL
Application: N020251 | Product #003
Applicant: GLAXO GROUP LTD ENGLAND DBA GLAXOSMITHKLINE
Approved: Apr 1, 2004 | RLD: No | RS: No | Type: DISCN